FAERS Safety Report 15363340 (Version 3)
Quarter: 2018Q4

REPORT INFORMATION
  Report Type: Spontaneous
  Country: US (occurrence: US)
  Receive Date: 20180907
  Receipt Date: 20181030
  Transmission Date: 20190204
  Serious: Yes (Other)
  Sender: FDA-Public Use
  Company Number: US-PFIZER INC-2018352094

PATIENT
  Age: 71 Year
  Sex: Male
  Weight: 68.27 kg

DRUGS (1)
  1. PREPARATION H SUPPOSITORY [Suspect]
     Active Substance: COCOA BUTTER\PHENYLEPHRINE HYDROCHLORIDE
     Indication: HAEMORRHOIDS
     Dosage: 1 DF, AS NEEDED [1 SUPPOSITORY EVERY 4 TIMES DAILY AS NEEDED]

REACTIONS (5)
  - Product physical issue [Unknown]
  - Product shape issue [Unknown]
  - Diarrhoea [Unknown]
  - Poor quality product administered [Unknown]
  - Colitis ulcerative [Unknown]
